FAERS Safety Report 16530681 (Version 1)
Quarter: 2019Q3

REPORT INFORMATION
  Report Type: Spontaneous
  Country: NL (occurrence: NL)
  Receive Date: 20190704
  Receipt Date: 20190704
  Transmission Date: 20191004
  Serious: Yes (Other)
  Sender: FDA-Public Use
  Company Number: NL-TEVA-2019-NL-1072670

PATIENT
  Age: 76 Year
  Sex: Male
  Weight: 74 kg

DRUGS (14)
  1. DIAZEPAM 5MG [Concomitant]
     Active Substance: DIAZEPAM
     Dosage: 1X1VN
  2. CALCIC CHEW D3 500/800 [Concomitant]
     Dosage: 1 X 1
  3. HYDROXOCOBALAMINE 1MG INJ [Concomitant]
     Dosage: 1X/2MND
  4. ENBREL INJECTIE 50MG [Concomitant]
     Dosage: 1X / WEEK ON MON.
  5. IRBESARTAN TABLET, 300 MG (MILLIGRAM) [Suspect]
     Active Substance: IRBESARTAN
     Indication: HYPERTENSION
     Dosage: 1X1
     Dates: start: 201711
  6. FOLIUMZUUR 5MG [Concomitant]
     Dosage: 1X2 TAB ONCE A WEEK
  7. PLAQUENIL 200MG [Concomitant]
     Dosage: 1 X 1
  8. SULFASALAZINE 200MG [Concomitant]
     Dosage: 2 X 1
  9. IRBESARTAN TABLET, 300 MG (MILLIGRAM) [Suspect]
     Active Substance: IRBESARTAN
     Dosage: 1X1
     Dates: start: 201710, end: 201711
  10. IRBESARTAN TABLET, 300 MG (MILLIGRAM) [Suspect]
     Active Substance: IRBESARTAN
     Dosage: 1X1
     Dates: start: 20180806, end: 20181115
  11. LOSEC 40MG [Concomitant]
     Dosage: 1 X 1
  12. CELEBREX [Concomitant]
     Active Substance: CELECOXIB
     Dosage: ZN 1 X 1
  13. IRBESARTAN TABLET, 300 MG (MILLIGRAM) [Suspect]
     Active Substance: IRBESARTAN
     Dosage: 1X1
     Dates: start: 201709, end: 201710
  14. PREDNISOLON 5 MG [Concomitant]
     Active Substance: PREDNISOLONE
     Dosage: 1 X 1

REACTIONS (1)
  - Toxic skin eruption [Recovered/Resolved]

NARRATIVE: CASE EVENT DATE: 20181028
